FAERS Safety Report 8200950-4 (Version None)
Quarter: 2012Q1

REPORT INFORMATION
  Report Type: 
  Country: None (occurrence: None)
  Receive Date: 20120312
  Receipt Date: 20110810
  Transmission Date: 20120608
  Serious: No
  Sender: FDA-Public Use
  Company Number: US-ABBOTT-11P-163-0845896-00

PATIENT
  Sex: Female

DRUGS (2)
  1. LUPRON DEPOT [Suspect]
     Indication: ENDOMETRIOSIS
     Dates: start: 20110322, end: 20110501
  2. NORETHINDRONE ACETATE [Concomitant]
     Indication: ENDOMETRIOSIS
     Dates: start: 20110322

REACTIONS (1)
  - ALOPECIA [None]
